FAERS Safety Report 15256472 (Version 2)
Quarter: 2018Q4

REPORT INFORMATION
  Report Type: Spontaneous
  Country: US (occurrence: US)
  Receive Date: 20180808
  Receipt Date: 20181231
  Transmission Date: 20190204
  Serious: No
  Sender: FDA-Public Use
  Company Number: US-PFIZER INC-2018313611

PATIENT
  Age: 41 Year
  Sex: Female

DRUGS (6)
  1. METOCLOPRAMIDE HCL [Suspect]
     Active Substance: METOCLOPRAMIDE HYDROCHLORIDE
     Dosage: UNK
  2. DIPHENHYDRAMINE HCL [Suspect]
     Active Substance: DIPHENHYDRAMINE HYDROCHLORIDE
     Dosage: UNK
  3. NEOMYCIN SULFATE. [Suspect]
     Active Substance: NEOMYCIN SULFATE
     Dosage: UNK
  4. ONDANSETRON [Suspect]
     Active Substance: ONDANSETRON
     Dosage: UNK
  5. PROCHLORPERAZINE EDISYLATE. [Suspect]
     Active Substance: PROCHLORPERAZINE EDISYLATE
     Dosage: UNK
  6. DOLASETRON [Suspect]
     Active Substance: DOLASETRON
     Dosage: UNK

REACTIONS (1)
  - Drug hypersensitivity [Unknown]
